FAERS Safety Report 8229535-0 (Version None)
Quarter: 2012Q1

REPORT INFORMATION
  Report Type: 
  Country: None (occurrence: None)
  Receive Date: 20120322
  Receipt Date: 20120316
  Transmission Date: 20120608
  Serious: Yes (Other)
  Sender: FDA-Public Use
  Company Number: CHPA2012ES004967

PATIENT
  Sex: Female

DRUGS (1)
  1. OTRIVIN [Suspect]
     Indication: NASAL CONGESTION
     Dosage: ONE SPRAY IN EACH NOSTRIL 2-3 TIMES DAILY
     Route: 045

REACTIONS (2)
  - APPLICATION SITE PAIN [None]
  - DRUG DEPENDENCE [None]
